FAERS Safety Report 7677579 (Version 3)
Quarter: 2014Q2

REPORT INFORMATION
  Report Type: Spontaneous
  Country: US (occurrence: US)
  Receive Date: 20101122
  Receipt Date: 20140523
  Transmission Date: 20141212
  Serious: Yes (Other)
  Sender: FDA-Public Use
  Company Number: US-BAYER-201041829NA

PATIENT
  Age: 18 Year
  Sex: Female
  Weight: 86.17 kg

DRUGS (6)
  1. YAZ [Suspect]
     Indication: CONTRACEPTION
     Dosage: UNK UNK, QD
     Route: 048
     Dates: start: 200810, end: 200811
  2. AMBIEN [Concomitant]
     Indication: SLEEP DISORDER THERAPY
     Dosage: 10 MG, UNK
     Dates: start: 20060926, end: 20080928
  3. CITALOPRAM [Concomitant]
     Dosage: 20 MG, UNK
  4. DARVOCET-N [Concomitant]
  5. FERROUS SULFATE [Concomitant]
     Dosage: 325 MG, UNK
  6. MULTIVITAMIN [Concomitant]

REACTIONS (3)
  - Cholecystectomy [Unknown]
  - Cholecystitis [Unknown]
  - Pain [Unknown]
